FAERS Safety Report 17887973 (Version 2)
Quarter: 2020Q2

REPORT INFORMATION
  Report Type: Spontaneous
  Country: IT (occurrence: IT)
  Receive Date: 20200612
  Receipt Date: 20200619
  Transmission Date: 20200714
  Serious: Yes (Hospitalization, Other)
  Sender: FDA-Public Use
  Company Number: IT-AUROBINDO-AUR-APL-2020-028370

PATIENT
  Age: 41 Year
  Sex: Male
  Weight: 105 kg

DRUGS (2)
  1. PARACETAMOL TABLET [Suspect]
     Active Substance: ACETAMINOPHEN
     Indication: PRODUCT USED FOR UNKNOWN INDICATION
     Dosage: 32 GRAM TOTAL
     Route: 048
     Dates: start: 20200121, end: 20200121
  2. ATARAX [Suspect]
     Active Substance: HYDROXYZINE HYDROCHLORIDE
     Indication: PRODUCT USED FOR UNKNOWN INDICATION
     Dosage: 625 MILLIGRAM TOTAL
     Route: 048
     Dates: start: 20200121, end: 20200121

REACTIONS (6)
  - Hepatocellular injury [Recovering/Resolving]
  - Abdominal pain [Recovered/Resolved]
  - Toxicity to various agents [Recovering/Resolving]
  - International normalised ratio increased [Recovering/Resolving]
  - Suicide attempt [Recovering/Resolving]
  - Drug abuse [Recovering/Resolving]

NARRATIVE: CASE EVENT DATE: 20200121
